FAERS Safety Report 10296681 (Version 1)
Quarter: 2014Q3

REPORT INFORMATION
  Report Type: Spontaneous
  Country: US (occurrence: None)
  Receive Date: 20140708
  Receipt Date: 20140708
  Transmission Date: 20150326
  Serious: Yes (Other)
  Sender: FDA-Public Use
  Company Number: None

PATIENT
  Age: 59 Year
  Sex: Female
  Weight: 61.24 kg

DRUGS (1)
  1. LIOTHYRONINE SODIUM. [Suspect]
     Active Substance: LIOTHYRONINE SODIUM
     Indication: HYPOTHYROIDISM
     Dosage: 5 MCG/180 PILLS TWICE DAILY TAKEN BY MOUTH
     Route: 048
     Dates: start: 20140412, end: 20140414

REACTIONS (5)
  - Frequent bowel movements [None]
  - Emotional disorder [None]
  - Nausea [None]
  - Crying [None]
  - Hypothyroidism [None]

NARRATIVE: CASE EVENT DATE: 20140414
